FAERS Safety Report 9523106 (Version 3)
Quarter: 2013Q3

REPORT INFORMATION
  Report Type: Spontaneous
  Country: CN (occurrence: CN)
  Receive Date: 20130913
  Receipt Date: 20130930
  Transmission Date: 20140515
  Serious: Yes (Death, Other)
  Sender: FDA-Public Use
  Company Number: CN-NAPPMUNDI-GBR-2013-0014060

PATIENT
  Sex: Male

DRUGS (6)
  1. OXYCODONE HCL PR TABLET 20 MG [Suspect]
     Indication: PAIN
     Dosage: 100 MG, Q12H
     Route: 048
  2. OXYCODONE HCL PR TABLET 20 MG [Suspect]
     Dosage: 120 MG, Q12H
  3. MORPHINE HYDROCHLORIDE [Concomitant]
     Indication: BREAKTHROUGH PAIN
  4. MELOXICAM [Concomitant]
  5. ALPRAZOLAM [Concomitant]
  6. CARBAMAZEPINE [Concomitant]

REACTIONS (3)
  - Coma [Recovered/Resolved]
  - Respiratory depression [Recovered/Resolved]
  - Malignant neoplasm progression [Fatal]
